FAERS Safety Report 20691817 (Version 3)
Quarter: 2022Q2

REPORT INFORMATION
  Report Type: Report from Study
  Country: PL (occurrence: PL)
  Receive Date: 20220408
  Receipt Date: 20220601
  Transmission Date: 20220721
  Serious: Yes (Hospitalization)
  Sender: FDA-Public Use
  Company Number: PL-JNJFOC-20211224343

PATIENT
  Age: 69 Year
  Sex: Male
  Weight: 92 kg

DRUGS (40)
  1. CILTACABTAGENE AUTOLEUCEL [Suspect]
     Active Substance: CILTACABTAGENE AUTOLEUCEL
     Indication: Plasma cell myeloma
     Dosage: DOSE ALSO REPORTED AS 70 ML
     Route: 042
     Dates: start: 20211027, end: 20211027
  2. DARATUMUMAB [Suspect]
     Active Substance: DARATUMUMAB
     Indication: Plasma cell myeloma
     Dosage: 1800 MG, MEDICATION KIT NUMBERS 1067292, 2670207, 9420659
     Route: 058
     Dates: start: 20210813, end: 20211001
  3. CYCLOPHOSPHAMIDE [Suspect]
     Active Substance: CYCLOPHOSPHAMIDE
     Indication: Plasma cell myeloma
     Dosage: DOSE ALSO REPORTED AS 530.9 ML
     Route: 042
     Dates: start: 20211022, end: 20211024
  4. FLUDARABINE [Suspect]
     Active Substance: FLUDARABINE PHOSPHATE
     Indication: Plasma cell myeloma
     Dosage: DOSE ALSO REPORTED AS 251.98 ML
     Route: 042
     Dates: start: 20211022, end: 20211024
  5. CONTROLOC [Concomitant]
     Active Substance: PANTOPRAZOLE SODIUM
     Indication: Gastritis prophylaxis
     Route: 048
     Dates: start: 20150801
  6. CALPEROS (CALCIUM CARBONATE) [Concomitant]
     Indication: Prophylaxis
     Route: 048
     Dates: start: 20150801
  7. ZOLEDRONIC ACID [Concomitant]
     Active Substance: ZOLEDRONIC ACID
     Indication: Prophylaxis
     Route: 042
     Dates: start: 20150801
  8. ENOXAPARIN SODIUM [Concomitant]
     Active Substance: ENOXAPARIN SODIUM
     Indication: Deep vein thrombosis
     Route: 058
     Dates: start: 20151101
  9. FUROSEMIDE [Concomitant]
     Active Substance: FUROSEMIDE
     Indication: Cardiac failure
     Route: 048
     Dates: start: 20210301
  10. POTASSIUM CHLORIDE [Concomitant]
     Active Substance: POTASSIUM CHLORIDE
     Indication: Prophylaxis
     Route: 048
     Dates: start: 20210301
  11. HASCOVIR [Concomitant]
     Indication: Antiviral prophylaxis
     Route: 048
     Dates: start: 20210809, end: 20211208
  12. HASCOVIR [Concomitant]
     Route: 048
     Dates: start: 20211229, end: 20220201
  13. CLEMASTINE [Concomitant]
     Active Substance: CLEMASTINE
     Indication: Pruritus
     Route: 048
     Dates: start: 20210821
  14. LOPERAMIDE [Concomitant]
     Active Substance: LOPERAMIDE
     Indication: Diarrhoea
     Route: 048
     Dates: start: 20211121
  15. LOPERAMIDE [Concomitant]
     Active Substance: LOPERAMIDE
     Route: 048
     Dates: start: 20211122, end: 20211126
  16. XIFAXAN [Concomitant]
     Active Substance: RIFAXIMIN
     Indication: Diarrhoea
     Route: 048
     Dates: start: 20211122, end: 20211123
  17. ELECTROLYTES (NOS) [Concomitant]
     Indication: Diarrhoea
     Route: 042
     Dates: start: 20211123
  18. ZOFRAN [Concomitant]
     Active Substance: ONDANSETRON HYDROCHLORIDE
     Indication: Diarrhoea
     Route: 042
     Dates: start: 20211123
  19. ZOFRAN [Concomitant]
     Active Substance: ONDANSETRON HYDROCHLORIDE
     Route: 042
     Dates: start: 20211124, end: 20211124
  20. ZOFRAN [Concomitant]
     Active Substance: ONDANSETRON HYDROCHLORIDE
     Route: 042
     Dates: start: 20211125, end: 20211128
  21. ZOFRAN [Concomitant]
     Active Substance: ONDANSETRON HYDROCHLORIDE
     Route: 042
     Dates: start: 20211129, end: 20211129
  22. ZOFRAN [Concomitant]
     Active Substance: ONDANSETRON HYDROCHLORIDE
     Route: 042
     Dates: start: 20211202, end: 20211202
  23. POTASSIUM CHLORIDE [Concomitant]
     Active Substance: POTASSIUM CHLORIDE
     Indication: Diarrhoea
     Route: 042
     Dates: start: 20211125
  24. PIPERACILLIN SODIUM\TAZOBACTAM SODIUM [Concomitant]
     Active Substance: PIPERACILLIN SODIUM\TAZOBACTAM SODIUM
     Indication: Diarrhoea
     Route: 042
     Dates: start: 20211126, end: 20211207
  25. FILGRASTIM [Concomitant]
     Active Substance: FILGRASTIM
     Indication: Neutropenia
     Route: 058
     Dates: start: 20211129, end: 20211203
  26. FILGRASTIM [Concomitant]
     Active Substance: FILGRASTIM
     Indication: Prophylaxis
     Route: 058
     Dates: start: 20211221, end: 20211225
  27. FILGRASTIM [Concomitant]
     Active Substance: FILGRASTIM
     Route: 058
     Dates: start: 20211117, end: 20211119
  28. FILGRASTIM [Concomitant]
     Active Substance: FILGRASTIM
     Route: 058
     Dates: start: 20211229, end: 20220102
  29. FILGRASTIM [Concomitant]
     Active Substance: FILGRASTIM
     Route: 058
     Dates: start: 20220106, end: 20220109
  30. GRANULOCYTE COLONY-STIMULATING FACTOR NOS [Concomitant]
     Active Substance: GRANULOCYTE COLONY-STIMULATING FACTOR NOS
     Indication: Neutropenia
     Dates: start: 20211221, end: 20211225
  31. GRANULOCYTE COLONY-STIMULATING FACTOR NOS [Concomitant]
     Active Substance: GRANULOCYTE COLONY-STIMULATING FACTOR NOS
     Dosage: RESTARTED ON AN UNSPECIFIED DATE
  32. TRILAC [TRIAMCINOLONE ACETONIDE] [Concomitant]
     Indication: Antidiarrhoeal supportive care
     Route: 048
     Dates: start: 20211208
  33. AUGMENTIN [Concomitant]
     Active Substance: AMOXICILLIN\CLAVULANATE POTASSIUM
     Indication: Upper respiratory tract infection
     Route: 048
     Dates: start: 20211221, end: 20211230
  34. BISEPTOL [Concomitant]
     Active Substance: SULFAMETHOXAZOLE\TRIMETHOPRIM
     Indication: Prophylaxis
     Route: 048
     Dates: start: 20211116
  35. CIPRONEX [CIPROFLOXACIN] [Concomitant]
     Indication: Diarrhoea
     Route: 048
     Dates: start: 20211202, end: 20211208
  36. HYDROXYZINE HYDROCHLORIDE [Concomitant]
     Active Substance: HYDROXYZINE HYDROCHLORIDE
     Indication: Diarrhoea
     Route: 048
     Dates: start: 20211123, end: 20211125
  37. ALLOPURINOL [Concomitant]
     Active Substance: ALLOPURINOL
     Indication: Diarrhoea
     Route: 048
     Dates: start: 20211125, end: 20211207
  38. ACETAMINOPHEN [Concomitant]
     Active Substance: ACETAMINOPHEN
     Indication: Diarrhoea
     Route: 042
     Dates: start: 20211126, end: 20211126
  39. DROTAVERINE HYDROCHLORIDE [Concomitant]
     Active Substance: DROTAVERINE HYDROCHLORIDE
     Indication: Diarrhoea
     Route: 042
     Dates: start: 20211202, end: 20211205
  40. PROBIODROP [Concomitant]
     Indication: Diarrhoea
     Route: 048
     Dates: start: 20211202, end: 20211208

REACTIONS (3)
  - Cytomegalovirus infection [Recovered/Resolved]
  - Parvovirus B19 infection [Recovered/Resolved]
  - Staphylococcal bacteraemia [Recovered/Resolved]

NARRATIVE: CASE EVENT DATE: 20211203
